FAERS Safety Report 12281312 (Version 1)
Quarter: 2016Q2

REPORT INFORMATION
  Report Type: Spontaneous
  Country: US (occurrence: None)
  Receive Date: 20160418
  Receipt Date: 20160418
  Transmission Date: 20160815
  Serious: Yes (Other)
  Sender: FDA-Public Use
  Company Number: None

PATIENT
  Age: 17 Year
  Sex: Male
  Weight: 63.5 kg

DRUGS (2)
  1. PREDNISONE. [Suspect]
     Active Substance: PREDNISONE
     Indication: TONSILLITIS
     Dates: start: 20151231, end: 20160101
  2. PREDNISONE. [Suspect]
     Active Substance: PREDNISONE
     Indication: LYMPHADENOPATHY
     Dates: start: 20151231, end: 20160101

REACTIONS (2)
  - Fatigue [None]
  - Hiccups [None]

NARRATIVE: CASE EVENT DATE: 20151231
